FAERS Safety Report 17084171 (Version 1)
Quarter: 2019Q4

REPORT INFORMATION
  Report Type: Spontaneous
  Country: IT (occurrence: IT)
  Receive Date: 20191127
  Receipt Date: 20191127
  Transmission Date: 20200122
  Serious: Yes (Hospitalization)
  Sender: FDA-Public Use
  Company Number: IT-MYLANLABS-2019M1115544

PATIENT
  Age: 66 Year
  Sex: Male
  Weight: 107 kg

DRUGS (9)
  1. LANTUS [Concomitant]
     Active Substance: INSULIN GLARGINE
     Dosage: UNK
  2. GLUCOPHAGE [Concomitant]
     Active Substance: METFORMIN HYDROCHLORIDE
     Dosage: UNK
  3. CRESTOR [Concomitant]
     Active Substance: ROSUVASTATIN CALCIUM
     Dosage: 10 MILLIGRAM, QD
  4. ENBREL [Concomitant]
     Active Substance: ETANERCEPT
     Dosage: UNK
  5. OLMEGAN [Concomitant]
     Active Substance: HYDROCHLOROTHIAZIDE\OLMESARTAN MEDOXOMIL
     Dosage: UNK
  6. FORXIGA [Concomitant]
     Active Substance: DAPAGLIFLOZIN
     Dosage: UNK
  7. APIDRA [Concomitant]
     Active Substance: INSULIN GLULISINE
     Dosage: UNK
  8. LACIDIPINE [Concomitant]
     Active Substance: LACIDIPINE
     Dosage: 4 MILLIGRAM, QD
  9. FULCROSUPRA [Suspect]
     Active Substance: FENOFIBRATE
     Indication: PRODUCT USED FOR UNKNOWN INDICATION
     Dosage: 145 MILLIGRAM, QD
     Dates: start: 20190208, end: 20190520

REACTIONS (1)
  - Cerebrovascular accident [Recovered/Resolved]

NARRATIVE: CASE EVENT DATE: 20190504
